FAERS Safety Report 25149435 (Version 2)
Quarter: 2025Q3

REPORT INFORMATION
  Report Type: Spontaneous
  Country: US (occurrence: US)
  Receive Date: 20250402
  Receipt Date: 20250901
  Transmission Date: 20251021
  Serious: No
  Sender: BRISTOL-MYERS SQUIBB COMPANY
  Company Number: US-BRISTOL-MYERS SQUIBB COMPANY-2025-048489

PATIENT
  Age: 64 Year
  Sex: Male

DRUGS (1)
  1. REVLIMID [Suspect]
     Active Substance: LENALIDOMIDE
     Indication: Plasma cell myeloma
     Dosage: 28 CYCLE WITH NO BREAKS
     Route: 048
     Dates: start: 202401

REACTIONS (10)
  - Cough [Unknown]
  - Rhinorrhoea [Unknown]
  - Productive cough [Unknown]
  - Fatigue [Unknown]
  - Anosmia [Unknown]
  - Ageusia [Unknown]
  - Weight decreased [Unknown]
  - Illness [Unknown]
  - Nasopharyngitis [Unknown]
  - Epistaxis [Unknown]

NARRATIVE: CASE EVENT DATE: 20250225
